FAERS Safety Report 8218440-1 (Version None)
Quarter: 2012Q1

REPORT INFORMATION
  Report Type: 
  Country: None (occurrence: None)
  Receive Date: 20120305
  Receipt Date: 20111206
  Transmission Date: 20120608
  Serious: No
  Sender: FDA-Public Use
  Company Number: 1000026042

PATIENT
  Age: 34 Year
  Sex: Female

DRUGS (1)
  1. DALIRESP [Suspect]

REACTIONS (2)
  - SOCIAL PHOBIA [None]
  - HALLUCINATION [None]
